FAERS Safety Report 9053551 (Version 1)
Quarter: 2013Q1

REPORT INFORMATION
  Report Type: Spontaneous
  Country: NL (occurrence: NL)
  Receive Date: 20130208
  Receipt Date: 20130208
  Transmission Date: 20140127
  Serious: Yes (Life-Threatening)
  Sender: FDA-Public Use
  Company Number: NL-AMGEN-NLDSP2012080995

PATIENT
  Age: 86 Year
  Sex: Female
  Weight: 56 kg

DRUGS (21)
  1. PROLIA [Suspect]
     Indication: BACK PAIN
     Dosage: 60 MG, Q6MO
     Route: 058
     Dates: start: 20121029
  2. ARANESP [Concomitant]
     Dosage: 20 MUG, Q2WK
     Dates: start: 20120507
  3. LASIX                              /00032601/ [Concomitant]
     Dosage: 125 MG, QD
     Dates: start: 20121018
  4. MOVICOLON [Concomitant]
     Dosage: 0.5 DF, SACHET
     Dates: start: 20110203
  5. OXAZEPAM [Concomitant]
     Dosage: 10 MG, BID
     Dates: start: 20120104
  6. PARACETAMOL/CODEINE [Concomitant]
     Dosage: 500/20 MG, QID
     Dates: start: 20121106
  7. PARACETAMOL [Concomitant]
     Dosage: 500 MG, QID
     Dates: start: 20121105
  8. CALCI CHEW [Concomitant]
     Dosage: 1000 MG, BID
     Dates: start: 20121105
  9. FENTANYL [Concomitant]
     Dosage: 1 DF, ONCE IN 3 DAYS
     Dates: start: 20130121
  10. DOMPERIDON                         /00498201/ [Concomitant]
     Dosage: 60 MG, QD
     Dates: start: 20121120
  11. EMLA                               /00675501/ [Concomitant]
     Dosage: 50 MG/G, UNK
     Dates: start: 20111024
  12. ESOMEPRAZOL                        /01479302/ [Concomitant]
     Dosage: 40 MG, QD
     Dates: start: 20110426
  13. SPONGOSTAN [Concomitant]
     Dosage: 2 DF, ON DIALYSIS DAYS
     Dates: start: 20120305
  14. ZESTRIL [Concomitant]
     Dosage: 10 MG, QD
     Dates: start: 20110424
  15. COLECALCIFEROL [Concomitant]
     Dosage: 50000 IU, QMO
     Dates: start: 20110203
  16. PREGABALIN [Concomitant]
     Dosage: 75 MG, QD
     Dates: start: 20121112
  17. TILDIEM XR [Concomitant]
     Dosage: 300 MG, QD
     Dates: start: 20110203
  18. ETALPHA [Concomitant]
     Dosage: 1 MUG, QD
     Dates: start: 20121210
  19. VENOFER [Concomitant]
     Dosage: 100 MG, Q4WK
     Dates: start: 20121207
  20. VITAMIN [Concomitant]
     Dosage: 1 DF, BEFORE DIALYSIS
     Dates: start: 20111024
  21. FRAXIPARINE                        /01437701/ [Suspect]
     Dosage: 1 DF, DURING DIALYSIS
     Dates: start: 20120507

REACTIONS (3)
  - Hypocalcaemia [Recovering/Resolving]
  - Weight decreased [Unknown]
  - Spinal osteoarthritis [Unknown]
